FAERS Safety Report 16759483 (Version 1)
Quarter: 2019Q3

REPORT INFORMATION
  Report Type: Spontaneous
  Country: NO (occurrence: NO)
  Receive Date: 20190830
  Receipt Date: 20190830
  Transmission Date: 20191005
  Serious: Yes (Hospitalization)
  Sender: FDA-Public Use
  Company Number: NO-EMD SERONO-E2B_90070298

PATIENT
  Age: 46 Year
  Sex: Male

DRUGS (4)
  1. FIRMAGON [Suspect]
     Active Substance: DEGARELIX ACETATE
     Dosage: 80 MG MAINTENANCE DOSE
     Route: 001
     Dates: end: 2018
  2. FIRMAGON [Suspect]
     Active Substance: DEGARELIX ACETATE
     Indication: MULTIPLE SCLEROSIS
     Dosage: 240 MG INITIALLY, POWDER AND SOLVENT FOR INJECTION
     Route: 058
     Dates: start: 2017
  3. MAVENCLAD [Suspect]
     Active Substance: CLADRIBINE
     Indication: MULTIPLE SCLEROSIS
     Dosage: RECOMMENDED DOSE WAS 3.5MG/KG DURING 2 YEARS
     Route: 048
     Dates: start: 201806
  4. TOSTRAN [Suspect]
     Active Substance: TESTOSTERONE
     Indication: BLOOD TESTOSTERONE DECREASED
     Dosage: LOW DOSE OF TOSTRAN GEL USED FOR ABOUT 2 AND A HALF YEARS
     Route: 003
     Dates: start: 2017, end: 201906

REACTIONS (1)
  - Bladder cancer [Recovered/Resolved with Sequelae]

NARRATIVE: CASE EVENT DATE: 201906
